FAERS Safety Report 4514219-2 (Version None)
Quarter: 2004Q4

REPORT INFORMATION
  Report Type: 
  Country: None (occurrence: None)
  Receive Date: 20041124
  Receipt Date: 20041109
  Transmission Date: 20050328
  Serious: Yes (Hospitalization)
  Sender: FDA-Public Use
  Company Number: 8008115

PATIENT
  Age: 69 Year
  Sex: Male

DRUGS (1)
  1. KEPPRA [Suspect]
     Indication: PARTIAL SEIZURES
     Dates: start: 20040901, end: 20040901

REACTIONS (2)
  - COLITIS ULCERATIVE [None]
  - DIARRHOEA [None]
